FAERS Safety Report 6333344-7 (Version None)
Quarter: 2009Q3

REPORT INFORMATION
  Report Type: 
  Country: None (occurrence: None)
  Receive Date: 20090828
  Receipt Date: 20090515
  Transmission Date: 20100115
  Serious: No
  Sender: FDA-Public Use
  Company Number: A0785142A

PATIENT
  Sex: Female

DRUGS (1)
  1. BECONASE [Suspect]
     Indication: DRUG USE FOR UNKNOWN INDICATION
     Route: 045

REACTIONS (1)
  - ADVERSE EVENT [None]
